FAERS Safety Report 25431840 (Version 2)
Quarter: 2025Q3

REPORT INFORMATION
  Report Type: Spontaneous
  Country: CO (occurrence: CO)
  Receive Date: 20250613
  Receipt Date: 20250924
  Transmission Date: 20251021
  Serious: Yes (Death, Hospitalization, Other)
  Sender: SANDOZ
  Company Number: CO-002147023-NVSC2024CO082250

PATIENT
  Age: 89 Year
  Sex: Male
  Weight: 65 kg

DRUGS (1)
  1. EXELON [Suspect]
     Active Substance: RIVASTIGMINE TARTRATE
     Indication: Dementia Alzheimer^s type
     Dosage: 1 DOSAGE FORM (EXTENDED RELEASE, PATCH), QD
     Route: 062
     Dates: start: 20210514, end: 20250527

REACTIONS (8)
  - Death [Fatal]
  - Pneumonia [Not Recovered/Not Resolved]
  - Irritability [Unknown]
  - Eschar [Not Recovered/Not Resolved]
  - Hypotension [Recovering/Resolving]
  - Hypertension [Recovered/Resolved]
  - Asthenia [Recovering/Resolving]
  - Decreased appetite [Recovering/Resolving]

NARRATIVE: CASE EVENT DATE: 20240405
